FAERS Safety Report 7530479-8 (Version None)
Quarter: 2011Q2

REPORT INFORMATION
  Report Type: 
  Country: None (occurrence: None)
  Receive Date: 20110607
  Receipt Date: 20110601
  Transmission Date: 20111010
  Serious: Yes (Other)
  Sender: FDA-Public Use
  Company Number: US-ABBOTT-10P-163-0687575-00

PATIENT
  Sex: Female
  Weight: 56.75 kg

DRUGS (4)
  1. UNKNOWN PAIN MEDICATION [Concomitant]
     Indication: HEADACHE
  2. NAPROXEN [Concomitant]
     Indication: PRODUCT USED FOR UNKNOWN INDICATION
  3. LUPRON DEPOT-PED [Suspect]
     Indication: PRECOCIOUS PUBERTY
     Dates: start: 20100901
  4. LUPRON DEPOT-PED [Suspect]

REACTIONS (6)
  - HEADACHE [None]
  - DYSPNOEA [None]
  - DYSACUSIS [None]
  - DIZZINESS [None]
  - HYPERACUSIS [None]
  - FEELING HOT [None]
